FAERS Safety Report 25264272 (Version 1)
Quarter: 2025Q2

REPORT INFORMATION
  Report Type: Spontaneous
  Country: US (occurrence: US)
  Receive Date: 20250502
  Receipt Date: 20250502
  Transmission Date: 20250716
  Serious: Yes (Congenital Anomaly)
  Sender: AMGEN
  Company Number: US-AMGEN-USASP2025085560

PATIENT
  Sex: Male

DRUGS (1)
  1. ENBREL [Suspect]
     Active Substance: ETANERCEPT
     Indication: Exposure during pregnancy
     Route: 064

REACTIONS (2)
  - Holoprosencephaly [Not Recovered/Not Resolved]
  - Foetal exposure during pregnancy [Unknown]
